FAERS Safety Report 4599576-3 (Version None)
Quarter: 2005Q1

REPORT INFORMATION
  Report Type: 
  Country: None (occurrence: None)
  Receive Date: 20050127
  Receipt Date: 20041018
  Transmission Date: 20050727
  Serious: No
  Sender: FDA-Public Use
  Company Number: USA041081437

PATIENT
  Age: 50 Year
  Sex: Female

DRUGS (3)
  1. STRATTERA [Suspect]
     Indication: ATTENTION DEFICIT/HYPERACTIVITY DISORDER
     Dosage: 40 MG DAY
     Dates: start: 20041015
  2. INSULIN [Concomitant]
  3. [ARNATE (TRANYLCYPROMINE) [Concomitant]

REACTIONS (1)
  - NERVOUSNESS [None]
